FAERS Safety Report 4881835-8 (Version None)
Quarter: 2006Q1

REPORT INFORMATION
  Report Type: 
  Country: None (occurrence: None)
  Receive Date: 20060112
  Receipt Date: 20060112
  Transmission Date: 20060701
  Serious: Yes (Disabling, Other)
  Sender: FDA-Public Use
  Company Number: None

PATIENT
  Age: 53 Year
  Sex: Female
  Weight: 104.3273 kg

DRUGS (1)
  1. PREDNISOLONE ACETATE OPHTHALMIC SUSPENSION/DROPS [Suspect]
     Indication: IRITIS
     Dosage: 1 DROP EVERY 2 HRS.
     Route: 047
     Dates: start: 20051011, end: 20051018

REACTIONS (4)
  - CONDITION AGGRAVATED [None]
  - PHARMACEUTICAL PRODUCT COMPLAINT [None]
  - THERAPEUTIC RESPONSE UNEXPECTED WITH DRUG SUBSTITUTION [None]
  - THERAPY NON-RESPONDER [None]
